FAERS Safety Report 7672069-2 (Version None)
Quarter: 2011Q3

REPORT INFORMATION
  Report Type: 
  Country: None (occurrence: None)
  Receive Date: 20110809
  Receipt Date: 20110726
  Transmission Date: 20111222
  Serious: Yes (Hospitalization)
  Sender: FDA-Public Use
  Company Number: PHHY2011FR68301

PATIENT
  Age: 42 Year
  Sex: Male

DRUGS (3)
  1. TEGRETOL [Suspect]
     Indication: EPILEPSY
     Dosage: 2 DF, UNK
     Route: 048
  2. DEPAKENE [Suspect]
     Dosage: 1 DF, BID
  3. ISOTRETINOIN [Suspect]
     Indication: ACNE
     Dosage: UNK UKN, UNK
     Dates: start: 20010101, end: 20110301

REACTIONS (4)
  - SUICIDE ATTEMPT [None]
  - HALLUCINATION [None]
  - FEAR [None]
  - SUICIDAL IDEATION [None]
